FAERS Safety Report 11370754 (Version 4)
Quarter: 2015Q3

REPORT INFORMATION
  Report Type: Spontaneous
  Country: GB (occurrence: GB)
  Receive Date: 20150812
  Receipt Date: 20150918
  Transmission Date: 20151125
  Serious: Yes (Other)
  Sender: FDA-Public Use
  Company Number: GB-SA-2015SA107053

PATIENT
  Age: 74 Year
  Sex: Female

DRUGS (7)
  1. BISOPROLOL FUMARATE. [Interacting]
     Active Substance: BISOPROLOL FUMARATE
     Indication: ANGINA PECTORIS
     Route: 065
     Dates: start: 201506
  2. SOLOSTAR [Concomitant]
     Active Substance: DEVICE
     Route: 058
     Dates: start: 2005
  3. NOVORAPID [Interacting]
     Active Substance: INSULIN ASPART
     Route: 065
     Dates: start: 2005
  4. LANTUS SOLOSTAR [Suspect]
     Active Substance: INSULIN GLARGINE
     Indication: TYPE 2 DIABETES MELLITUS
     Dosage: DOSE:22 UNIT(S)
     Route: 058
     Dates: start: 2005
  5. DULOXETINE. [Concomitant]
     Active Substance: DULOXETINE
  6. ASPIRIN. [Concomitant]
     Active Substance: ASPIRIN
  7. LEVOTHYROXINE. [Concomitant]
     Active Substance: LEVOTHYROXINE

REACTIONS (5)
  - Drug interaction [Unknown]
  - Hypoglycaemia [Recovered/Resolved]
  - Insomnia [Recovered/Resolved]
  - Glycosylated haemoglobin increased [Unknown]
  - Abdominal infection [Unknown]

NARRATIVE: CASE EVENT DATE: 2015
